FAERS Safety Report 9753615 (Version 6)
Quarter: 2014Q2

REPORT INFORMATION
  Report Type: Spontaneous
  Country: AR (occurrence: AR)
  Receive Date: 20131213
  Receipt Date: 20140521
  Transmission Date: 20141212
  Serious: Yes (Death, Hospitalization, Other)
  Sender: FDA-Public Use
  Company Number: PHHY2013AR081411

PATIENT
  Age: 50 Year
  Sex: Male

DRUGS (3)
  1. GILENYA [Suspect]
     Indication: MULTIPLE SCLEROSIS
     Route: 048
     Dates: start: 20121017, end: 20130905
  2. GILENYA [Suspect]
     Indication: OFF LABEL USE
  3. CORTICOSTEROIDS [Concomitant]
     Indication: MASS

REACTIONS (8)
  - Lymphoma [Fatal]
  - Ataxia [Fatal]
  - Intracranial pressure increased [Fatal]
  - Diplopia [Fatal]
  - Brain oedema [Fatal]
  - Sepsis [Fatal]
  - Demyelination [Recovering/Resolving]
  - Facial paresis [Unknown]
